FAERS Safety Report 20801086 (Version 2)
Quarter: 2022Q3

REPORT INFORMATION
  Report Type: Report from Study
  Country: PL (occurrence: PL)
  Receive Date: 20220509
  Receipt Date: 20220625
  Transmission Date: 20221026
  Serious: Yes (Death)
  Sender: FDA-Public Use
  Company Number: PL-NOVARTISPH-NVSC2022PL103115

PATIENT
  Sex: Male

DRUGS (20)
  1. ASCIMINIB [Suspect]
     Active Substance: ASCIMINIB
     Indication: Chronic myeloid leukaemia
     Dosage: 40 MG
     Route: 065
  2. ASCIMINIB [Suspect]
     Active Substance: ASCIMINIB
     Dosage: 1 DOSAGE FORM, BID
     Route: 048
     Dates: start: 20211202
  3. ISOSORBIDE MONONITRATE [Concomitant]
     Active Substance: ISOSORBIDE MONONITRATE
     Indication: Product used for unknown indication
     Dosage: 50 MG (1 X 1 )
     Route: 065
  4. MOLSIDOMINE [Concomitant]
     Active Substance: MOLSIDOMINE
     Indication: Product used for unknown indication
     Dosage: 4 MG (1X1 IF NEEDED)
     Route: 065
  5. FOLIC ACID [Concomitant]
     Active Substance: FOLIC ACID
     Indication: Product used for unknown indication
     Dosage: 15 MG (1-0-0)
     Route: 065
  6. FOLIC ACID [Concomitant]
     Active Substance: FOLIC ACID
     Dosage: 75 MG, QD
     Route: 065
     Dates: end: 20210713
  7. PLAVIX [Concomitant]
     Active Substance: CLOPIDOGREL BISULFATE
     Indication: Product used for unknown indication
     Dosage: 75 MG (1X1)
     Route: 065
     Dates: end: 20210713
  8. PLAVIX [Concomitant]
     Active Substance: CLOPIDOGREL BISULFATE
     Dosage: 75 MG, QD
     Route: 065
     Dates: end: 20210713
  9. CONTIX [Concomitant]
     Indication: Product used for unknown indication
     Dosage: 40 MG (1X1)
     Route: 065
  10. CONTIX [Concomitant]
     Dosage: 20 MG, QD
     Route: 065
  11. BISOPROLOL [Concomitant]
     Active Substance: BISOPROLOL
     Indication: Product used for unknown indication
     Dosage: 5 MG (1X1)
     Route: 065
  12. RAMIPRIL [Concomitant]
     Active Substance: RAMIPRIL
     Indication: Product used for unknown indication
     Dosage: 10 MG, 1X1
     Route: 065
  13. LECALPIN [Concomitant]
     Indication: Product used for unknown indication
     Dosage: 10 MG 1X1
     Route: 065
  14. ATORVASTATIN CALCIUM [Concomitant]
     Active Substance: ATORVASTATIN CALCIUM
     Indication: Product used for unknown indication
     Dosage: 40 MG 1X1
     Route: 065
  15. VEGEVIT [Concomitant]
     Indication: Product used for unknown indication
     Dosage: 1 TABL. AFTER MEAL
     Route: 065
  16. ETHAMSYLATE [Concomitant]
     Active Substance: ETHAMSYLATE
     Indication: Product used for unknown indication
     Dosage: 3 X 12 TABL. OF 500 MG/D
     Route: 065
  17. ENOXAPARIN SODIUM [Concomitant]
     Active Substance: ENOXAPARIN SODIUM
     Indication: Product used for unknown indication
     Dosage: 40 MG/D
     Route: 058
     Dates: end: 20210713
  18. ENOXAPARIN SODIUM [Concomitant]
     Active Substance: ENOXAPARIN SODIUM
     Dosage: UNK
     Route: 065
  19. ACARD [Concomitant]
     Indication: Product used for unknown indication
     Dosage: 75 MG 1X1
     Route: 065
     Dates: end: 20210713
  20. ACARD [Concomitant]
     Dosage: UNK
     Route: 065

REACTIONS (2)
  - Cerebral haemorrhage [Fatal]
  - Multiple organ dysfunction syndrome [Fatal]
